FAERS Safety Report 13351527 (Version 1)
Quarter: 2017Q1

REPORT INFORMATION
  Report Type: Spontaneous
  Country: JP (occurrence: JP)
  Receive Date: 20170320
  Receipt Date: 20170320
  Transmission Date: 20170429
  Serious: Yes (Hospitalization, Other)
  Sender: FDA-Public Use
  Company Number: JP-BAYER-2017-047881

PATIENT
  Age: 37 Year
  Sex: Female

DRUGS (2)
  1. HEPARIN CALCIUM [Concomitant]
     Active Substance: HEPARIN CALCIUM
     Indication: HABITUAL ABORTION
     Dosage: 5000 U, QD
     Route: 058
  2. ACETYLSALICYLIC ACID({=100 MG) [Suspect]
     Active Substance: ASPIRIN
     Indication: HABITUAL ABORTION
     Dosage: UNK
     Route: 048

REACTIONS (7)
  - Uterine rupture [None]
  - Abdominal pain upper [None]
  - Maternal exposure during pregnancy [Recovered/Resolved]
  - Threatened labour [None]
  - Premature delivery [None]
  - Off label use [None]
  - Uterine contractions during pregnancy [None]
